FAERS Safety Report 5530780-3 (Version None)
Quarter: 2007Q4

REPORT INFORMATION
  Report Type: 
  Country: None (occurrence: None)
  Receive Date: 20071130
  Receipt Date: 20071120
  Transmission Date: 20080405
  Serious: Yes (Disabling)
  Sender: FDA-Public Use
  Company Number: GB-WYE-G00556907

PATIENT
  Sex: Female
  Weight: 50 kg

DRUGS (5)
  1. VENLAFAXIINE HCL [Suspect]
     Indication: MAJOR DEPRESSION
     Dosage: 37.5MG A.M, 75MG P.M
     Route: 048
     Dates: start: 20041020
  2. VENLAFAXIINE HCL [Suspect]
     Indication: ANXIETY
     Dosage: 37.5MG A.M, 75MG P.M ALTERNATE DAYS
     Route: 048
     Dates: start: 20050128
  3. VENLAFAXIINE HCL [Suspect]
     Dosage: 37.5MG P.M ALTERNATE DAYS
     Route: 048
     Dates: start: 20050321
  4. VENLAFAXIINE HCL [Suspect]
     Dosage: 37.5 MG ALTERNATIVE DAY
     Route: 048
     Dates: start: 20050523
  5. VENLAFAXIINE HCL [Suspect]
     Route: 048
     Dates: start: 20050614, end: 20050818

REACTIONS (22)
  - APPETITE DISORDER [None]
  - BALANCE DISORDER [None]
  - DEPRESSED MOOD [None]
  - DIARRHOEA [None]
  - DISTURBANCE IN ATTENTION [None]
  - DIZZINESS [None]
  - DRUG WITHDRAWAL SYNDROME [None]
  - FATIGUE [None]
  - FEELING ABNORMAL [None]
  - HEADACHE [None]
  - HYPERVENTILATION [None]
  - HYPOGLYCAEMIA [None]
  - INSOMNIA [None]
  - JOB DISSATISFACTION [None]
  - MEMORY IMPAIRMENT [None]
  - MYALGIA [None]
  - NAUSEA [None]
  - PALPITATIONS [None]
  - PARTNER STRESS [None]
  - TINNITUS [None]
  - VISION BLURRED [None]
  - VOMITING [None]
